FAERS Safety Report 16959757 (Version 7)
Quarter: 2020Q2

REPORT INFORMATION
  Report Type: Report from Study
  Country: None (occurrence: US)
  Receive Date: 20191025
  Receipt Date: 20200624
  Transmission Date: 20200713
  Serious: Yes (Hospitalization, Other)
  Sender: FDA-Public Use
  Company Number: US-ABBVIE-19K-163-2972339-00

PATIENT
  Age: 82 Year
  Sex: Male

DRUGS (6)
  1. METHOTREXATE. [Concomitant]
     Active Substance: METHOTREXATE
     Indication: RHEUMATOID ARTHRITIS
  2. HUMIRA [Suspect]
     Active Substance: ADALIMUMAB
     Indication: RHEUMATOID ARTHRITIS
     Route: 058
  3. HUMIRA [Suspect]
     Active Substance: ADALIMUMAB
     Indication: RHEUMATOID ARTHRITIS
     Route: 058
     Dates: start: 2018
  4. HUMIRA [Suspect]
     Active Substance: ADALIMUMAB
     Indication: OSTEOARTHRITIS
  5. HUMIRA [Suspect]
     Active Substance: ADALIMUMAB
     Indication: OSTEOARTHRITIS
     Route: 058
  6. HUMIRA [Suspect]
     Active Substance: ADALIMUMAB
     Route: 058

REACTIONS (24)
  - Fatigue [Not Recovered/Not Resolved]
  - Device breakage [Recovered/Resolved]
  - Osteoarthritis [Not Recovered/Not Resolved]
  - Device issue [Unknown]
  - Chondropathy [Recovering/Resolving]
  - Arthritis [Unknown]
  - Pneumonia [Not Recovered/Not Resolved]
  - Dyspnoea [Not Recovered/Not Resolved]
  - Weight decreased [Unknown]
  - Device issue [Unknown]
  - Knee arthroplasty [Unknown]
  - Idiopathic pulmonary fibrosis [Not Recovered/Not Resolved]
  - Cardiac disorder [Recovered/Resolved with Sequelae]
  - Wrong technique in product usage process [Unknown]
  - Coronary artery occlusion [Not Recovered/Not Resolved]
  - Pulmonary embolism [Recovered/Resolved]
  - Nasopharyngitis [Not Recovered/Not Resolved]
  - Off label use [Unknown]
  - Brain neoplasm malignant [Unknown]
  - Arthritis [Not Recovered/Not Resolved]
  - Cardiovascular disorder [Recovered/Resolved with Sequelae]
  - Skin cancer [Not Recovered/Not Resolved]
  - Pain [Unknown]
  - Localised infection [Recovering/Resolving]

NARRATIVE: CASE EVENT DATE: 2005
